FAERS Safety Report 6091335-8 (Version None)
Quarter: 2009Q1

REPORT INFORMATION
  Report Type: 
  Country: None (occurrence: None)
  Receive Date: 20090220
  Receipt Date: 20090220
  Transmission Date: 20090719
  Serious: Yes (Hospitalization)
  Sender: FDA-Public Use
  Company Number: None

PATIENT
  Age: 40 Year
  Sex: Male
  Weight: 57.8336 kg

DRUGS (6)
  1. ERLOTINIB 100MG/ORAL/DAILY [Suspect]
     Indication: NASAL SINUS CANCER
     Dosage: 100MG/ORAL/DAILY
     Route: 048
     Dates: start: 20081008, end: 20090209
  2. BEVACIZUMAB 10MG/KG WEEKS 1, 3, 5, 7 [Suspect]
     Indication: NASAL SINUS CANCER
     Dosage: 10MG/KG/IV WKS 1, 3, 5, 7
     Route: 042
     Dates: start: 20081222, end: 20090204
  3. ACETAMINOPHEN [Concomitant]
  4. DEXAMETHASONE [Concomitant]
  5. ONDANSETRON [Concomitant]
  6. CISPLATIN [Concomitant]

REACTIONS (16)
  - BLOOD CHLORIDE DECREASED [None]
  - CHILLS [None]
  - CONSTIPATION [None]
  - DEHYDRATION [None]
  - FAECALOMA [None]
  - HAEMATOCRIT DECREASED [None]
  - HAEMOGLOBIN DECREASED [None]
  - HYPERHIDROSIS [None]
  - HYPOPHAGIA [None]
  - NAUSEA [None]
  - ORAL PAIN [None]
  - PLATELET COUNT DECREASED [None]
  - PYREXIA [None]
  - URINE OUTPUT DECREASED [None]
  - VOMITING [None]
  - WHITE BLOOD CELL COUNT DECREASED [None]
